FAERS Safety Report 8313371-0 (Version None)
Quarter: 2012Q2

REPORT INFORMATION
  Report Type: 
  Country: None (occurrence: None)
  Receive Date: 20120426
  Receipt Date: 20120419
  Transmission Date: 20120825
  Serious: Yes (Other)
  Sender: FDA-Public Use
  Company Number: PHHY2012JP017318

PATIENT
  Sex: Male
  Weight: 45 kg

DRUGS (7)
  1. ALLEGRA [Concomitant]
     Indication: METASTATIC RENAL CELL CARCINOMA
     Dosage: 60 MG, UNK
     Route: 048
  2. CIMETIDINE [Concomitant]
     Indication: GASTRITIS
     Dosage: 200 MG, UNK
     Route: 048
  3. VESICARE [Concomitant]
     Dosage: 5 MG, UNK
     Route: 048
  4. AZUNOL [Concomitant]
     Indication: PROPHYLAXIS
     Route: 048
     Dates: start: 20110901, end: 20110906
  5. AFINITOR [Suspect]
     Dosage: 5 MG, DAILY
     Route: 048
     Dates: start: 20110902, end: 20111129
  6. URSO 250 [Concomitant]
     Indication: METASTATIC RENAL CELL CARCINOMA
     Dosage: 100 MG, UNK
     Route: 048
  7. AFINITOR [Suspect]
     Indication: METASTATIC RENAL CELL CARCINOMA
     Dosage: 10 MG, DAILY
     Route: 048
     Dates: start: 20100830, end: 20110901

REACTIONS (1)
  - C-REACTIVE PROTEIN INCREASED [None]
